FAERS Safety Report 7999570-6 (Version None)
Quarter: 2011Q4

REPORT INFORMATION
  Report Type: 
  Country: None (occurrence: None)
  Receive Date: 20111221
  Receipt Date: 20111216
  Transmission Date: 20120403
  Serious: Yes (Hospitalization, Other)
  Sender: FDA-Public Use
  Company Number: US-PFIZER INC-2011152944

PATIENT
  Sex: Male

DRUGS (12)
  1. HYDROCHLOROTHIAZIDE [Concomitant]
     Indication: BLOOD PRESSURE
     Dosage: UNK
     Dates: start: 20080101
  2. METFORMIN [Concomitant]
     Indication: BLOOD GLUCOSE ABNORMAL
     Dosage: UNK
     Dates: start: 20080101
  3. SYMBICORT [Concomitant]
     Indication: DYSPNOEA
     Dosage: UNK
     Dates: start: 20080101
  4. SEROQUEL [Concomitant]
     Indication: DEPRESSION
     Dosage: 50 MG, UNK
     Dates: start: 20080101
  5. LEVOTHYROXINE [Concomitant]
     Indication: THYROID DISORDER
     Dosage: UNK
     Dates: start: 20080101
  6. COZAAR [Concomitant]
     Indication: BLOOD PRESSURE
     Dosage: UNK
     Dates: start: 20080101
  7. ACCUPRIL [Concomitant]
     Indication: HYPERTENSION
     Dosage: UNK
  8. TRICOR [Concomitant]
     Indication: BLOOD CHOLESTEROL
     Dosage: UNK
     Dates: start: 20080101
  9. ACTOS [Concomitant]
     Indication: BLOOD GLUCOSE ABNORMAL
     Dosage: UNK
  10. CHANTIX [Suspect]
     Indication: SMOKING CESSATION THERAPY
     Dosage: 1 MG, UNK
     Route: 048
     Dates: start: 20090201, end: 20091201
  11. NORVASC [Concomitant]
     Indication: BLOOD PRESSURE
     Dosage: UNK
     Dates: start: 20080101
  12. MOBIC [Concomitant]
     Indication: ARTHRITIS
     Dosage: UNK
     Dates: start: 20080101

REACTIONS (4)
  - ANXIETY [None]
  - INTENTIONAL OVERDOSE [None]
  - SUICIDE ATTEMPT [None]
  - DEPRESSION [None]
